FAERS Safety Report 14822910 (Version 1)
Quarter: 2018Q2

REPORT INFORMATION
  Report Type: Spontaneous
  Country: FR (occurrence: FR)
  Receive Date: 20180427
  Receipt Date: 20180427
  Transmission Date: 20180711
  Serious: Yes (Death, Life-Threatening, Other)
  Sender: FDA-Public Use
  Company Number: FR-OTSUKA-2018_010694

PATIENT
  Age: 26 Year
  Sex: Male
  Weight: 65 kg

DRUGS (6)
  1. AMSACRINE [Suspect]
     Active Substance: AMSACRINE
     Indication: BONE MARROW TRANSPLANT
     Dosage: 180 MG, QD (1/DAY)
     Route: 042
     Dates: start: 20171026, end: 20171029
  2. ARACYTINE [Suspect]
     Active Substance: CYTARABINE
     Indication: BONE MARROW TRANSPLANT
     Dosage: 3600 MG, QD (1/DAY)
     Route: 042
     Dates: start: 20171026, end: 20171029
  3. FLUDARABINE PHOSPHATE. [Suspect]
     Active Substance: FLUDARABINE PHOSPHATE
     Indication: BONE MARROW TRANSPLANT
     Dosage: 20 MG/M2, QD (1/DAY)
     Route: 042
     Dates: start: 20171026, end: 20171029
  4. MESNA. [Suspect]
     Active Substance: MESNA
     Indication: PRODUCT USED FOR UNKNOWN INDICATION
     Dosage: UNK
     Route: 042
     Dates: start: 20171102, end: 20171112
  5. ENDOXAN [Suspect]
     Active Substance: CYCLOPHOSPHAMIDE
     Indication: BONE MARROW TRANSPLANT
     Dosage: 60 MG/KG 3 DOSES: 02/11 11/11 ET 12/11
     Route: 042
     Dates: start: 20171102, end: 20171111
  6. BUSULFAN. [Suspect]
     Active Substance: BUSULFAN
     Indication: BONE MARROW TRANSPLANT
     Dosage: 3.2 MG/KG, QD (1/DAY)
     Route: 042
     Dates: start: 20171103, end: 20171104

REACTIONS (2)
  - Septic shock [Fatal]
  - Venoocclusive liver disease [Fatal]

NARRATIVE: CASE EVENT DATE: 201711
